FAERS Safety Report 19114488 (Version 1)
Quarter: 2021Q2

REPORT INFORMATION
  Report Type: Spontaneous
  Country: DE (occurrence: DE)
  Receive Date: 20210409
  Receipt Date: 20210409
  Transmission Date: 20210717
  Serious: Yes (Other)
  Sender: FDA-Public Use
  Company Number: DE-BAUSCH-BL-2021-011227

PATIENT
  Sex: Male

DRUGS (2)
  1. VELMETIA [Suspect]
     Active Substance: METFORMIN\SITAGLIPTIN
     Indication: BLOOD GLUCOSE ABNORMAL
     Dosage: 50/1000MG TWICE DAILY (DAILY DOSE OF 100/2000 MG)
     Route: 048
     Dates: start: 201806, end: 201912
  2. METFORMIN [Suspect]
     Active Substance: METFORMIN HYDROCHLORIDE
     Indication: PRODUCT USED FOR UNKNOWN INDICATION
     Dosage: 1000 MILLIGRAM, TWICE DAILY
     Route: 048
     Dates: start: 2016

REACTIONS (2)
  - Pemphigus [Unknown]
  - Overdose [Unknown]

NARRATIVE: CASE EVENT DATE: 201806
